FAERS Safety Report 15307407 (Version 2)
Quarter: 2018Q3

REPORT INFORMATION
  Report Type: Spontaneous
  Country: US (occurrence: US)
  Receive Date: 20180822
  Receipt Date: 20180824
  Transmission Date: 20181010
  Serious: Yes (Other)
  Sender: FDA-Public Use
  Company Number: US-TEVA-2018-US-944745

PATIENT
  Sex: Female

DRUGS (19)
  1. ASPIRIN. [Concomitant]
     Active Substance: ASPIRIN
  2. DOCUSATE [Concomitant]
     Active Substance: DOCUSATE
  3. MULTIVITAMIN [Concomitant]
     Active Substance: VITAMINS
  4. CETIRIZINE [Concomitant]
     Active Substance: CETIRIZINE HYDROCHLORIDE
  5. TRISENOX [Suspect]
     Active Substance: ARSENIC TRIOXIDE
     Dates: end: 20180612
  6. DUONEB [Concomitant]
     Active Substance: ALBUTEROL SULFATE\IPRATROPIUM BROMIDE
  7. VITAMIN D [Concomitant]
     Active Substance: CHOLECALCIFEROL
  8. TRISENOX [Suspect]
     Active Substance: ARSENIC TRIOXIDE
     Indication: ACUTE MYELOID LEUKAEMIA
  9. AMLODIPINE [Concomitant]
     Active Substance: AMLODIPINE BESYLATE
  10. FLONASE [Concomitant]
     Active Substance: FLUTICASONE PROPIONATE
  11. GUAIFENESIN. [Concomitant]
     Active Substance: GUAIFENESIN
  12. TOPROL XL [Concomitant]
     Active Substance: METOPROLOL SUCCINATE
  13. PREDNISONE. [Concomitant]
     Active Substance: PREDNISONE
  14. TRETINOIN. [Concomitant]
     Active Substance: TRETINOIN
  15. ACYCLOVIR. [Concomitant]
     Active Substance: ACYCLOVIR
  16. VORICONAZOLE. [Concomitant]
     Active Substance: VORICONAZOLE
  17. TRISENOX [Suspect]
     Active Substance: ARSENIC TRIOXIDE
  18. TYLENOL [Concomitant]
     Active Substance: ACETAMINOPHEN
  19. HYZAAR [Concomitant]
     Active Substance: HYDROCHLOROTHIAZIDE\LOSARTAN POTASSIUM

REACTIONS (1)
  - Hepatic enzyme increased [Unknown]

NARRATIVE: CASE EVENT DATE: 2018
